FAERS Safety Report 18938380 (Version 3)
Quarter: 2022Q2

REPORT INFORMATION
  Report Type: Spontaneous
  Country: US (occurrence: CA)
  Receive Date: 20210225
  Receipt Date: 20220519
  Transmission Date: 20220721
  Serious: Yes (Hospitalization, Other)
  Sender: FDA-Public Use
  Company Number: US-PUMA BIOTECHNOLOGY, INC.-2021CA001367

PATIENT

DRUGS (12)
  1. NERLYNX [Suspect]
     Active Substance: NERATINIB
     Indication: Product used for unknown indication
     Dosage: 1000 MILLIGRAM, BID
     Route: 065
  2. CAPECITABINE [Suspect]
     Active Substance: CAPECITABINE
     Indication: Product used for unknown indication
     Dosage: 1000 MG, BID
     Route: 065
  3. CAPECITABINE [Suspect]
     Active Substance: CAPECITABINE
     Dosage: UNK
     Route: 065
     Dates: start: 201507
  4. CAPECITABINE [Suspect]
     Active Substance: CAPECITABINE
     Dosage: UNK
     Route: 065
     Dates: start: 20200214
  5. DEXAMETHASONE [Suspect]
     Active Substance: DEXAMETHASONE
     Indication: Product used for unknown indication
     Dosage: 4.0 MILLIGRAM 1 EVERY 1 DAYS
     Route: 065
  6. KADCYLA [Suspect]
     Active Substance: ADO-TRASTUZUMAB EMTANSINE
     Indication: Product used for unknown indication
     Dosage: UNK
     Route: 065
  7. TYKERB [Suspect]
     Active Substance: LAPATINIB DITOSYLATE
     Indication: Product used for unknown indication
     Dosage: UNK
     Route: 065
     Dates: start: 20200214
  8. PACLITAXEL [Suspect]
     Active Substance: PACLITAXEL
     Indication: Breast cancer metastatic
     Dosage: UNK
     Route: 042
  9. PERTUZUMAB [Suspect]
     Active Substance: PERTUZUMAB
     Indication: Breast cancer metastatic
     Dosage: UNK
     Route: 042
     Dates: start: 20190613
  10. TRASTUZUMAB [Suspect]
     Active Substance: TRASTUZUMAB
     Indication: Breast cancer metastatic
     Dosage: 6.0 MILLIGRAM PER KILOGRAM PER DAY ONCE/3 WEEKS
     Route: 042
     Dates: start: 20000715
  11. TRASTUZUMAB [Suspect]
     Active Substance: TRASTUZUMAB
     Dosage: UNK
     Route: 042
     Dates: start: 20190628, end: 20200103
  12. TRASTUZUMAB [Suspect]
     Active Substance: TRASTUZUMAB
     Dosage: 8.0 MG/KG 1 EVERY 3 WEEKS
     Route: 042
     Dates: end: 20190613

REACTIONS (8)
  - Breast cancer metastatic [Unknown]
  - Malignant neoplasm progression [Unknown]
  - Enteritis [Unknown]
  - Dizziness [Unknown]
  - Injury [Unknown]
  - Diarrhoea [Unknown]
  - Headache [Unknown]
  - Drug intolerance [Unknown]
